FAERS Safety Report 16243817 (Version 1)
Quarter: 2019Q2

REPORT INFORMATION
  Report Type: Spontaneous
  Country: US (occurrence: US)
  Receive Date: 20190425
  Receipt Date: 20190425
  Transmission Date: 20190711
  Serious: Yes (Other)
  Sender: FDA-Public Use
  Company Number: None

PATIENT
  Age: 8 Year
  Sex: Male
  Weight: 40.05 kg

DRUGS (1)
  1. MONTELUKAST SOD [Suspect]
     Active Substance: MONTELUKAST SODIUM
     Indication: ASTHMA
     Route: 048
     Dates: start: 20181105, end: 20190424

REACTIONS (4)
  - Mental disorder [None]
  - Neuropsychiatric symptoms [None]
  - Urinary incontinence [None]
  - Aggression [None]

NARRATIVE: CASE EVENT DATE: 20190424
